FAERS Safety Report 14752771 (Version 2)
Quarter: 2018Q2

REPORT INFORMATION
  Report Type: Report from Study
  Country: US (occurrence: US)
  Receive Date: 20180412
  Receipt Date: 20180518
  Transmission Date: 20180711
  Serious: Yes (Other)
  Sender: FDA-Public Use
  Company Number: US-AMGEN-USASL2018046501

PATIENT
  Age: 63 Year
  Sex: Female
  Weight: 46.71 kg

DRUGS (1)
  1. PROLIA [Suspect]
     Active Substance: DENOSUMAB
     Indication: OSTEOPOROSIS POSTMENOPAUSAL
     Dosage: 60 MG, UNK
     Route: 058
     Dates: start: 20170802, end: 20170802

REACTIONS (25)
  - Cystitis interstitial [Recovering/Resolving]
  - Endocrine disorder [Recovering/Resolving]
  - Hypersomnia [Unknown]
  - Asthenopia [Recovered/Resolved]
  - Weight decreased [Unknown]
  - Impaired work ability [Recovered/Resolved]
  - Infrequent bowel movements [Unknown]
  - Mitochondrial aspartate aminotransferase increased [Unknown]
  - Headache [Recovered/Resolved]
  - Blood immunoglobulin G decreased [Recovering/Resolving]
  - Social avoidant behaviour [Unknown]
  - Neuralgia [Not Recovered/Not Resolved]
  - Muscle atrophy [Recovering/Resolving]
  - Liver disorder [Recovering/Resolving]
  - Gait inability [Recovered/Resolved]
  - Hypoaesthesia [Recovered/Resolved]
  - Pain [Recovered/Resolved]
  - Vitamin D increased [Recovered/Resolved]
  - Eating disorder [Unknown]
  - Bone pain [Recovered/Resolved]
  - Nausea [Not Recovered/Not Resolved]
  - Crying [Recovered/Resolved]
  - Fatigue [Recovered/Resolved]
  - Mobility decreased [Recovered/Resolved]
  - Asthenia [Unknown]

NARRATIVE: CASE EVENT DATE: 20170809
